FAERS Safety Report 13262308 (Version 7)
Quarter: 2018Q4

REPORT INFORMATION
  Report Type: Spontaneous
  Country: FI (occurrence: FI)
  Receive Date: 20170222
  Receipt Date: 20181012
  Transmission Date: 20190204
  Serious: Yes (Life-Threatening, Hospitalization, Other)
  Sender: FDA-Public Use
  Company Number: FI-AUROBINDO-AUR-APL-2017-29952

PATIENT
  Age: 46 Year
  Sex: Female

DRUGS (11)
  1. TEMAZEPAM. [Concomitant]
     Active Substance: TEMAZEPAM
     Dosage: AS NEEDED
     Route: 065
  2. DIAZEPAM. [Concomitant]
     Active Substance: DIAZEPAM
     Indication: PRODUCT USED FOR UNKNOWN INDICATION
     Dosage: AS NECESSARY
  3. TEMAZEPAM. [Concomitant]
     Active Substance: TEMAZEPAM
     Indication: PRODUCT USED FOR UNKNOWN INDICATION
     Dosage: UNK
     Route: 016
  4. OLANZAPINE. [Suspect]
     Active Substance: OLANZAPINE
     Indication: SCHIZOPHRENIA
     Dosage: UNK
     Route: 065
  5. LYNESTRENOL [Concomitant]
     Active Substance: LYNESTRENOL
     Indication: PRODUCT USED FOR UNKNOWN INDICATION
     Dosage: UNK
     Route: 065
  6. MACROGOL [Concomitant]
     Active Substance: POLYETHYLENE GLYCOLS
     Indication: PRODUCT USED FOR UNKNOWN INDICATION
     Dosage: UNK
     Route: 065
  7. CLOZAPINE. [Suspect]
     Active Substance: CLOZAPINE
     Indication: SCHIZOPHRENIA
     Dosage: UNK
     Route: 065
  8. LEVETIRACETAM. [Concomitant]
     Active Substance: LEVETIRACETAM
     Indication: PRODUCT USED FOR UNKNOWN INDICATION
     Dosage: UNK
     Route: 065
  9. VALPROIC ACID. [Concomitant]
     Active Substance: VALPROIC ACID
     Indication: PRODUCT USED FOR UNKNOWN INDICATION
     Dosage: UNK
     Route: 065
  10. BIPERIDEN [Concomitant]
     Active Substance: BIPERIDEN
     Indication: PRODUCT USED FOR UNKNOWN INDICATION
     Dosage: UNK
     Route: 065
  11. CLOZAPINE. [Suspect]
     Active Substance: CLOZAPINE
     Dosage: SLOWLY RESTARTED
     Route: 065

REACTIONS (7)
  - Refusal of treatment by patient [Unknown]
  - Confusional state [Unknown]
  - Restlessness [Unknown]
  - Pneumonia [Unknown]
  - Hypoglycaemia [Unknown]
  - Petit mal epilepsy [Recovered/Resolved]
  - Hypothermia [Recovered/Resolved]
